FAERS Safety Report 15898703 (Version 3)
Quarter: 2020Q2

REPORT INFORMATION
  Report Type: Spontaneous
  Country: FR (occurrence: FR)
  Receive Date: 20190201
  Receipt Date: 20200528
  Transmission Date: 20200713
  Serious: Yes (Hospitalization, Other)
  Sender: FDA-Public Use
  Company Number: FR-AUROBINDO-AUR-APL-2019-003948

PATIENT
  Age: 82 Year
  Sex: Female
  Weight: 78 kg

DRUGS (11)
  1. LERCAN [Suspect]
     Active Substance: LERCANIDIPINE
     Indication: HYPERTENSION
     Dosage: 20 MILLIGRAM, DAILY, 0-0-1
     Route: 048
     Dates: start: 20180906
  2. ATORVASTATIN [Suspect]
     Active Substance: ATORVASTATIN
     Indication: CARDIOVASCULAR EVENT PROPHYLAXIS
     Dosage: 10 MILLIGRAM, DAILY, 0-0-1
     Route: 048
     Dates: start: 20180906
  3. DOLIPRANE [Suspect]
     Active Substance: ACETAMINOPHEN
     Indication: PAIN
     Dosage: 3 GRAM, DAILY, 1-1-1
     Route: 048
     Dates: start: 20180906
  4. DUOPLAVIN [Suspect]
     Active Substance: ASPIRIN\CLOPIDOGREL
     Indication: THROMBOSIS PROPHYLAXIS
     Dosage: 1 DOSAGE FORM, DAILY, 1-0-0
     Route: 048
     Dates: start: 20180906
  5. FUROSEMIDE. [Suspect]
     Active Substance: FUROSEMIDE
     Indication: HYPERTENSION
     Dosage: 20 MILLIGRAM, DAILY, 1-0-0
     Route: 048
     Dates: start: 20180906
  6. ZYMAD [Suspect]
     Active Substance: CHOLECALCIFEROL
     Indication: HYPOVITAMINOSIS
     Dosage: 80000 INTERNATIONAL UNIT, 15 DAY
     Route: 048
     Dates: start: 20180906
  7. RAMIPRIL. [Suspect]
     Active Substance: RAMIPRIL
     Indication: HYPERTENSION
     Dosage: 10 MILLIGRAM, DAILY, 1-0-0
     Route: 048
     Dates: start: 20180906
  8. LANTUS [Suspect]
     Active Substance: INSULIN GLARGINE
     Indication: KETOSIS-PRONE DIABETES MELLITUS
     Dosage: 22 INTERNATIONAL UNIT, DAILY
     Route: 058
     Dates: start: 20180906
  9. VICTOZA [Suspect]
     Active Substance: LIRAGLUTIDE
     Indication: KETOSIS-PRONE DIABETES MELLITUS
     Dosage: 1.2 MILLIGRAM, DAILY, 0-0-1
     Route: 048
     Dates: start: 20180906
  10. SPECIAFOLDINE [Suspect]
     Active Substance: FOLIC ACID
     Indication: HYPOVITAMINOSIS
     Dosage: 5 MILLIGRAM, DAILY
     Route: 048
     Dates: start: 20180906
  11. CYMBALTA [Suspect]
     Active Substance: DULOXETINE HYDROCHLORIDE
     Indication: DEPRESSION
     Dosage: 30 MILLIGRAM, DAILY, 0-0-1
     Route: 048
     Dates: start: 20180906

REACTIONS (3)
  - Rhabdomyolysis [Not Recovered/Not Resolved]
  - Asthenia [Not Recovered/Not Resolved]
  - Fall [Not Recovered/Not Resolved]

NARRATIVE: CASE EVENT DATE: 20181103
